FAERS Safety Report 4378461-6 (Version None)
Quarter: 2004Q2

REPORT INFORMATION
  Report Type: 
  Country: None (occurrence: None)
  Receive Date: 20040609
  Receipt Date: 20040528
  Transmission Date: 20050107
  Serious: Yes (Other)
  Sender: FDA-Public Use
  Company Number: NSADSS2002037859

PATIENT
  Age: 73 Year
  Sex: Female
  Weight: 54.8852 kg

DRUGS (11)
  1. REMICADE [Suspect]
     Indication: ANKYLOSING SPONDYLITIS
     Dosage: 300  MG, INTRAVENOUS DRIP
     Route: 041
     Dates: start: 20020801
  2. REMICADE [Suspect]
     Indication: RHEUMATOID ARTHRITIS
     Dosage: 300  MG, INTRAVENOUS DRIP
     Route: 041
     Dates: start: 20020801
  3. OXYCONTIN (OXYCDONE) [Concomitant]
  4. REMERON [Concomitant]
  5. METHOTREXATE [Concomitant]
  6. LISINOPRIL [Concomitant]
  7. HYDROCHLOROTHIAZIDE [Concomitant]
  8. DIGOXIN [Concomitant]
  9. LOMOTIL [Concomitant]
  10. FOLATE (FOLATE SODIUM) [Concomitant]
  11. PREDNISONE TAB [Concomitant]

REACTIONS (6)
  - ANKYLOSING SPONDYLITIS [None]
  - ANTINUCLEAR ANTIBODY POSITIVE [None]
  - CONDITION AGGRAVATED [None]
  - PNEUMONITIS [None]
  - PULMONARY FUNCTION TEST ABNORMAL [None]
  - SYSTEMIC LUPUS ERYTHEMATOSUS [None]
